FAERS Safety Report 13264595 (Version 2)
Quarter: 2019Q4

REPORT INFORMATION
  Report Type: Spontaneous
  Country: US (occurrence: US)
  Receive Date: 20170223
  Receipt Date: 20191024
  Transmission Date: 20200122
  Serious: Yes (Death, Other)
  Sender: FDA-Public Use
  Company Number: US-PFIZER INC-2017080706

PATIENT
  Age: 69 Year
  Sex: Male

DRUGS (34)
  1. CIALIS [Suspect]
     Active Substance: TADALAFIL
     Indication: DYSURIA
     Dosage: UNK, REGULARLY
     Route: 048
     Dates: start: 201309, end: 201409
  2. CIALIS [Suspect]
     Active Substance: TADALAFIL
     Dosage: 5 MG, 1X/DAY (QUANTITY:30)
     Route: 048
     Dates: start: 20130402
  3. CIALIS [Suspect]
     Active Substance: TADALAFIL
     Dosage: 20 MG, 01 TABLET PRN (QUANTITY: 08)
     Route: 048
     Dates: start: 20140304
  4. VIAGRA [Suspect]
     Active Substance: SILDENAFIL CITRATE
     Indication: DYSURIA
     Dosage: 100 MG, 1 PRN PRIOR TO SEXUAL ACTIVITY
     Route: 048
     Dates: start: 20130605, end: 20130925
  5. VIAGRA [Suspect]
     Active Substance: SILDENAFIL CITRATE
     Dosage: 100 MG, 01 TABLET PRN (QUANTITY:08)
     Route: 048
     Dates: start: 20130728
  6. CIALIS [Suspect]
     Active Substance: TADALAFIL
     Indication: ERECTILE DYSFUNCTION
     Dosage: UNK
     Route: 048
     Dates: start: 201301, end: 201304
  7. CIALIS [Suspect]
     Active Substance: TADALAFIL
     Dosage: 20 MG, 1 PRN PRIOR TO SEXUAL ACTIVITY
     Route: 048
     Dates: start: 20130927, end: 20141023
  8. CIALIS [Suspect]
     Active Substance: TADALAFIL
     Dosage: 20 MG, 01 TABLET PRN (QUANTITY: 08)
     Route: 048
     Dates: start: 20131227
  9. CIALIS [Suspect]
     Active Substance: TADALAFIL
     Dosage: 20 MG, 01 TABLET PRN (QUANTITY: 08)
     Route: 048
     Dates: start: 20140708
  10. CIALIS [Suspect]
     Active Substance: TADALAFIL
     Dosage: 20 MG, 01 TABLET PRN (QUANTITY: 08)
     Route: 048
     Dates: start: 20140731
  11. TESTOSTERONE. [Concomitant]
     Active Substance: TESTOSTERONE
     Dosage: 200 MG, 1X EVERY TWO WEEKS
     Dates: start: 20130328
  12. TESTOSTERONE PELLETS [Concomitant]
     Active Substance: TESTOSTERONE
     Dosage: 12 PELLETS, EVERY 3 MONTHS
     Dates: start: 20140623
  13. VIAGRA [Suspect]
     Active Substance: SILDENAFIL CITRATE
     Dosage: 100 MG, 01 TABLET PRN (QUANTITY:08)
     Route: 048
     Dates: start: 20130605
  14. CIALIS [Suspect]
     Active Substance: TADALAFIL
     Dosage: 20 MG, 01 TABLET PRN (QUANTITY: 08)
     Route: 048
     Dates: start: 20130927
  15. TESTOSTERONE. [Concomitant]
     Active Substance: TESTOSTERONE
     Indication: BLOOD TESTOSTERONE DECREASED
     Dosage: 200 MG, 1X EVERY TWO WEEKS
     Dates: start: 20130314
  16. TESTOSTERONE. [Concomitant]
     Active Substance: TESTOSTERONE
     Dosage: 200 MG, 1X EVERY TWO WEEKS
     Dates: start: 20130415
  17. TESTOSTERONE PELLETS [Concomitant]
     Active Substance: TESTOSTERONE
     Dosage: 12 PELLETS, EVERY 3 MONTHS
     Dates: start: 20140319
  18. VIAGRA [Suspect]
     Active Substance: SILDENAFIL CITRATE
     Indication: ERECTILE DYSFUNCTION
     Dosage: UNK
     Route: 048
     Dates: start: 201306, end: 201308
  19. CIALIS [Suspect]
     Active Substance: TADALAFIL
     Dosage: 5 MG, 1X/DAY
     Route: 048
     Dates: start: 20130116, end: 20130501
  20. CIALIS [Suspect]
     Active Substance: TADALAFIL
     Dosage: 5 MG, 1X/DAY (01 SAMPLE; QUANTITY:30)
     Route: 048
     Dates: start: 20130116
  21. CIALIS [Suspect]
     Active Substance: TADALAFIL
     Dosage: 5 MG, 1X/DAY (QUANTITY:30)
     Route: 048
     Dates: start: 20130213
  22. CIALIS [Suspect]
     Active Substance: TADALAFIL
     Dosage: 20 MG, 01 TABLET PRN (QUANTITY: 08)
     Route: 048
     Dates: start: 20131028
  23. CIALIS [Suspect]
     Active Substance: TADALAFIL
     Dosage: 20 MG, 01 TABLET PRN (QUANTITY: 08)
     Route: 048
     Dates: start: 20131129
  24. TESTOSTERONE PELLETS [Concomitant]
     Active Substance: TESTOSTERONE
     Dosage: 12 PELLETS, EVERY 3 MONTHS
     Dates: start: 20131205
  25. CIALIS [Suspect]
     Active Substance: TADALAFIL
     Dosage: 20 MG, 01 TABLET PRN (QUANTITY: 08)
     Route: 048
     Dates: start: 20140130
  26. CIALIS [Suspect]
     Active Substance: TADALAFIL
     Dosage: 20 MG, 01 TABLET PRN (QUANTITY: 08)
     Route: 048
     Dates: start: 20140531
  27. CIALIS [Suspect]
     Active Substance: TADALAFIL
     Dosage: 20 MG, 01 TABLET PRN (QUANTITY: 08)
     Route: 048
     Dates: start: 20140924
  28. TESTOSTERONE. [Concomitant]
     Active Substance: TESTOSTERONE
     Indication: ASTHENIA
     Dosage: 200 MG, 1X EVERY TWO WEEKS
     Dates: start: 20130228
  29. TESTOSTERONE PELLETS [Concomitant]
     Active Substance: TESTOSTERONE
     Indication: BLOOD TESTOSTERONE DECREASED
     Dosage: 12 PELLETS, EVERY 3 MONTHS
     Dates: start: 20130905
  30. VIAGRA [Suspect]
     Active Substance: SILDENAFIL CITRATE
     Dosage: 100 MG, 01 TABLET PRN (QUANTITY:08)
     Route: 048
     Dates: start: 20130628
  31. VIAGRA [Suspect]
     Active Substance: SILDENAFIL CITRATE
     Dosage: 100 MG, 01 TABLET PRN (QUANTITY:08)
     Route: 048
     Dates: start: 20130827
  32. CIALIS [Suspect]
     Active Substance: TADALAFIL
     Dosage: 20 MG, 01 TABLET PRN (QUANTITY: 08)
     Route: 048
     Dates: start: 20140328
  33. CIALIS [Suspect]
     Active Substance: TADALAFIL
     Dosage: 20 MG, 01 TABLET PRN (QUANTITY: 08)
     Route: 048
     Dates: start: 20140430
  34. TESTOSTERONE PELLETS [Concomitant]
     Active Substance: TESTOSTERONE
     Indication: ASTHENIA
     Dosage: 12 PELLETS, EVERY 3 MONTHS
     Dates: start: 20130530

REACTIONS (3)
  - Neuroendocrine carcinoma of the skin [Unknown]
  - Metastatic neoplasm [Fatal]
  - Malignant melanoma [Unknown]

NARRATIVE: CASE EVENT DATE: 201309
